FAERS Safety Report 6184284-8 (Version None)
Quarter: 2009Q2

REPORT INFORMATION
  Report Type: 
  Country: None (occurrence: None)
  Receive Date: 20090508
  Receipt Date: 20090427
  Transmission Date: 20091009
  Serious: Yes (Other)
  Sender: FDA-Public Use
  Company Number: US-ELI_LILLY_AND_COMPANY-US200905000720

PATIENT
  Age: 60 Year
  Sex: Female
  Weight: 123.9 kg

DRUGS (16)
  1. BYETTA [Suspect]
     Indication: TYPE 2 DIABETES MELLITUS
     Dosage: 5 UG, 2/D
     Route: 058
  2. BYETTA [Suspect]
     Dosage: 10 UG, 2/D
     Route: 058
     Dates: start: 20060809
  3. FISH OIL [Concomitant]
  4. LANTUS [Concomitant]
     Dosage: 35 U, 2/D
  5. HUMALOG [Concomitant]
     Dosage: 14 U, EACH MORNING
  6. HUMALOG [Concomitant]
     Dosage: 17 U, DAILY (1/D)
  7. HUMALOG [Concomitant]
     Dosage: 22 U, EACH EVENING
  8. ALDOMET [Concomitant]
     Dosage: 500 MG, 2/D
  9. ACCUPRIL [Concomitant]
     Dosage: 60 MG, DAILY (1/D)
  10. COREG [Concomitant]
     Dosage: 25 MG, 2/D
  11. LASIX [Concomitant]
     Dosage: 40 MG, AS NEEDED
  12. FLONASE [Concomitant]
     Dosage: UNK, DAILY (1/D)
  13. ASPIRIN [Concomitant]
     Dosage: 325 MG, AS NEEDED
  14. METFORMIN HCL [Concomitant]
     Dosage: 1000 MG, 2/D
  15. VITAMIN D [Concomitant]
     Dosage: 1200 IU, DAILY (1/D)
  16. TYLENOL                                 /SCH/ [Concomitant]
     Dosage: UNK, AS NEEDED

REACTIONS (1)
  - GASTROINTESTINAL HAEMORRHAGE [None]
